FAERS Safety Report 6289375-9 (Version None)
Quarter: 2009Q3

REPORT INFORMATION
  Report Type: 
  Country: None (occurrence: None)
  Receive Date: 20090730
  Receipt Date: 20090717
  Transmission Date: 20100115
  Serious: Yes (Death)
  Sender: FDA-Public Use
  Company Number: GB-RANBAXY-2009RR-25764

PATIENT
  Age: 75 Year
  Sex: Male
  Weight: 83 kg

DRUGS (17)
  1. SERTRALINE [Suspect]
     Indication: DEPRESSION
     Dosage: 50 MG, UNK
     Route: 048
     Dates: start: 20090508
  2. AMITRIPTYLINE HCL [Concomitant]
     Indication: ANXIETY
     Dosage: 10 MG, QD
     Route: 048
     Dates: start: 20090422, end: 20090501
  3. AMITRIPTYLINE HCL [Concomitant]
     Indication: INSOMNIA
  4. BECLOMETHASONE DIPROPIONATE [Concomitant]
     Indication: HYPERSENSITIVITY
     Dosage: UNK
     Dates: start: 20090226
  5. CEPHALEXIN [Concomitant]
     Indication: LOWER RESPIRATORY TRACT INFECTION
     Dosage: 25 MG, QID
     Route: 048
     Dates: start: 20090209, end: 20090216
  6. CITALOPRAM HYDROBROMIDE [Concomitant]
     Indication: ANXIETY
     Dosage: 10 MG, QD
     Route: 048
     Dates: start: 20090309, end: 20090310
  7. ACETAMINOPHEN W/ CODEINE [Concomitant]
     Indication: PAIN
     Dosage: 2 DF, QID
     Route: 048
     Dates: start: 20050120
  8. FINASTERIDE [Concomitant]
     Indication: PROSTATISM
     Dosage: 5 MG, UNK
     Route: 048
     Dates: start: 20070411
  9. GAVISCON [Concomitant]
     Indication: DYSPEPSIA
     Dosage: UNK
     Route: 048
     Dates: start: 20090326
  10. OMEPRAZOLE [Concomitant]
     Indication: DYSPEPSIA
     Dosage: 20 MG, BID
     Route: 048
     Dates: start: 20090223, end: 20090305
  11. ACETAMINOPHEN [Concomitant]
     Indication: ANALGESIA
     Dosage: 500 MG, QID
     Route: 048
     Dates: start: 20090420
  12. PREDNISOLONE [Concomitant]
     Indication: LOWER RESPIRATORY TRACT INFECTION
     Dosage: 5 MG, UNK
     Route: 048
     Dates: start: 20090209, end: 20090216
  13. RABEPRAZOLE SODIUM [Concomitant]
     Indication: DYSPEPSIA
     Dosage: 20 MG, UNK
     Route: 048
     Dates: start: 20090305
  14. TAMSULOSIN [Concomitant]
     Indication: PROSTATISM
     Dosage: 400 UG, UNK
     Route: 048
     Dates: start: 20051213
  15. TEMAZEPAM [Concomitant]
     Indication: POOR QUALITY SLEEP
     Dosage: 10 MG, QD
     Route: 048
     Dates: start: 20090326, end: 20090405
  16. TRIMETHOPRIM [Concomitant]
     Indication: URINARY TRACT INFECTION
     Dosage: 200 MG, BID
     Route: 048
     Dates: start: 20090310, end: 20090317
  17. ZOPICLONE [Concomitant]
     Indication: INSOMNIA
     Dosage: 3.75 MG, QD
     Route: 048
     Dates: start: 20090501

REACTIONS (1)
  - COMPLETED SUICIDE [None]
